FAERS Safety Report 17802295 (Version 2)
Quarter: 2020Q4

REPORT INFORMATION
  Report Type: Spontaneous
  Country: US (occurrence: US)
  Receive Date: 20200519
  Receipt Date: 20201211
  Transmission Date: 20210113
  Serious: No
  Sender: FDA-Public Use
  Company Number: US-PFIZER INC-2020198285

PATIENT
  Age: 84 Year
  Sex: Male

DRUGS (1)
  1. LYRICA [Suspect]
     Active Substance: PREGABALIN
     Dosage: 50 MG, 3X/DAY (TAKE 1 CAPSULE BY MOUTH)
     Route: 048

REACTIONS (2)
  - Depressed mood [Unknown]
  - Malaise [Unknown]
